FAERS Safety Report 8605172-0 (Version None)
Quarter: 2012Q3

REPORT INFORMATION
  Report Type: 
  Country: None (occurrence: None)
  Receive Date: 20120820
  Receipt Date: 20120809
  Transmission Date: 20120928
  Serious: Yes (Hospitalization)
  Sender: FDA-Public Use
  Company Number: FR-PFIZER INC-FR-WYE-H14965810

PATIENT
  Age: 81 Year
  Sex: Female

DRUGS (10)
  1. PANTOPRAZOLE SODIUM [Suspect]
     Dosage: 20 MG, DAILY
     Route: 048
  2. ATENOLOL [Suspect]
     Dosage: 1 DF (50 MG/12.5 MG), 1X/DAY
     Route: 048
  3. CALCIUM CARBONATE [Concomitant]
     Dosage: UNK
  4. CRESTOR [Concomitant]
     Dosage: UNK
  5. FELODIPINE [Suspect]
     Dosage: 1 DF (5 MG/47.5 MG), 1X/DAY
     Route: 048
  6. IRBESARTAN [Concomitant]
     Dosage: 1 DF (150 MG), 1X/DAY
     Route: 048
  7. BONIVA [Concomitant]
     Dosage: UNK
  8. STRUCTUM [Concomitant]
     Dosage: UNK
  9. ASPIRIN [Concomitant]
     Dosage: UNK
  10. BETASERC [Concomitant]
     Dosage: UNK

REACTIONS (2)
  - HYPOKALAEMIA [None]
  - HYPONATRAEMIA [None]
